FAERS Safety Report 9443439 (Version 2)
Quarter: 2013Q3

REPORT INFORMATION
  Report Type: Spontaneous
  Country: JP (occurrence: JP)
  Receive Date: 20130806
  Receipt Date: 20130815
  Transmission Date: 20140515
  Serious: Yes (Other)
  Sender: FDA-Public Use
  Company Number: JP-GLAXOSMITHKLINE-B0912956A

PATIENT
  Age: 79 Year
  Sex: Male
  Weight: 63 kg

DRUGS (6)
  1. AVOLVE [Suspect]
     Indication: BENIGN PROSTATIC HYPERPLASIA
     Dosage: .5MG PER DAY
     Route: 048
     Dates: start: 20120314
  2. TAMSULOSIN HYDROCHLORIDE [Concomitant]
     Indication: BENIGN PROSTATIC HYPERPLASIA
     Dosage: .2MG PER DAY
     Route: 048
     Dates: start: 20120314
  3. MICARDIS [Concomitant]
     Route: 048
     Dates: start: 20120314, end: 20120511
  4. PREMINENT [Concomitant]
     Route: 048
     Dates: start: 20120512
  5. VASOLAN [Concomitant]
     Route: 048
  6. MAGNESIUM OXIDE [Concomitant]
     Route: 048

REACTIONS (4)
  - Blood alkaline phosphatase increased [Not Recovered/Not Resolved]
  - Anaemia [Not Recovered/Not Resolved]
  - Lung neoplasm malignant [Unknown]
  - Neoplasm [Unknown]
